FAERS Safety Report 7830543-X (Version None)
Quarter: 2011Q4

REPORT INFORMATION
  Report Type: 
  Country: None (occurrence: None)
  Receive Date: 20111021
  Receipt Date: 20111006
  Transmission Date: 20120403
  Serious: Yes (Hospitalization, Other)
  Sender: FDA-Public Use
  Company Number: FR-PFIZER INC-HQ0828301FEB2000

PATIENT
  Age: 85 Year
  Sex: Female

DRUGS (6)
  1. CALCIUM GLUBIONATE [Suspect]
     Dosage: 500.0 MG, 1X/DAY
     Route: 048
     Dates: end: 19991129
  2. VITAMIN D [Suspect]
     Dosage: 0.5 MG, 1X/DAY
     Route: 048
     Dates: end: 19991129
  3. BENAZEPRIL HCL AND HYDROCHLOROTHIAZIDE [Suspect]
     Dosage: 1.0 IU, 1X/DAY
     Route: 048
     Dates: end: 19991129
  4. CORDARONE [Suspect]
     Indication: CARDIAC DISORDER
     Dosage: 600.0 MG, 1X/DAY
     Route: 048
     Dates: start: 19991004, end: 19991129
  5. DILTIAZEM HCL [Suspect]
     Indication: ARRHYTHMIA
     Dosage: DOSE UNKNOWN
     Route: 048
     Dates: start: 19991004, end: 19991129
  6. DIGOXIN [Suspect]
     Dosage: .01 MG, 1X/DAY
     Route: 048
     Dates: start: 19991004, end: 19991129

REACTIONS (5)
  - THROMBOCYTOPENIA [None]
  - LEUKOCYTOSIS [None]
  - HEPATIC ENZYME INCREASED [None]
  - HYPOCHROMIC ANAEMIA [None]
  - PROTHROMBIN LEVEL DECREASED [None]
